FAERS Safety Report 14672622 (Version 5)
Quarter: 2019Q4

REPORT INFORMATION
  Report Type: Spontaneous
  Country: US (occurrence: US)
  Receive Date: 20180323
  Receipt Date: 20191111
  Transmission Date: 20200122
  Serious: No
  Sender: FDA-Public Use
  Company Number: US-PFIZER INC-2018122393

PATIENT
  Age: 72 Year
  Sex: Female

DRUGS (7)
  1. ALTACE [Concomitant]
     Active Substance: RAMIPRIL
     Dosage: 5 MG, 2X/DAY
     Dates: start: 199702
  2. LIPITOR [Concomitant]
     Active Substance: ATORVASTATIN CALCIUM
     Dosage: 80 MG, 2X/DAY
     Dates: start: 199702
  3. VITAMIN E [Concomitant]
     Active Substance: .ALPHA.-TOCOPHEROL
     Dosage: 400 IU, DAILY
     Dates: start: 199702
  4. ASPIRIN. [Concomitant]
     Active Substance: ASPIRIN
     Dosage: 81 MG, DAILY
     Dates: start: 199702
  5. LYRICA [Suspect]
     Active Substance: PREGABALIN
     Indication: POST HERPETIC NEURALGIA
     Dosage: 150 MG, 2X/DAY
     Route: 048
  6. ALPRAZAM [Concomitant]
     Dosage: UNK, 1X/DAY, (0.25, UNITS NOT REPORTED, FROM ONE YEAR AGO)
  7. METOPROLOL TARTRATE. [Concomitant]
     Active Substance: METOPROLOL TARTRATE
     Dosage: 12.5 MG, 2X/DAY (25MG 1/2 TABLET 2 X DAILY)

REACTIONS (1)
  - Thinking abnormal [Not Recovered/Not Resolved]
